FAERS Safety Report 6828354-7 (Version None)
Quarter: 2010Q3

REPORT INFORMATION
  Report Type: 
  Country: None (occurrence: None)
  Receive Date: 20100709
  Receipt Date: 20070208
  Transmission Date: 20110219
  Serious: No
  Sender: FDA-Public Use
  Company Number: US-PFIZER INC-2007011050

PATIENT
  Sex: Female
  Weight: 90.72 kg

DRUGS (5)
  1. CHANTIX [Suspect]
     Indication: SMOKING CESSATION THERAPY
     Route: 048
     Dates: start: 20070101
  2. PAXIL [Concomitant]
     Route: 048
  3. REMERON [Concomitant]
     Route: 048
  4. XANAX [Concomitant]
     Route: 048
  5. VITAMINS [Concomitant]

REACTIONS (3)
  - ABNORMAL DREAMS [None]
  - NAUSEA [None]
  - SOMNOLENCE [None]
